FAERS Safety Report 16630432 (Version 1)
Quarter: 2019Q3

REPORT INFORMATION
  Report Type: Report from Study
  Country: US (occurrence: US)
  Receive Date: 20190725
  Receipt Date: 20190725
  Transmission Date: 20191004
  Serious: Yes (Other)
  Sender: FDA-Public Use
  Company Number: PHEH2019US030222

PATIENT
  Sex: Male

DRUGS (1)
  1. AFINITOR [Suspect]
     Active Substance: EVEROLIMUS
     Indication: SEIZURE
     Dosage: 4 MG, QD
     Route: 048
     Dates: start: 20190604

REACTIONS (7)
  - Cough [Unknown]
  - Concomitant disease aggravated [Unknown]
  - Condition aggravated [Unknown]
  - Hyperhidrosis [Unknown]
  - Seizure [Unknown]
  - Tremor [Unknown]
  - Peripheral coldness [Unknown]
